FAERS Safety Report 25301799 (Version 1)
Quarter: 2025Q2

REPORT INFORMATION
  Report Type: Spontaneous
  Country: US (occurrence: None)
  Receive Date: 20250512
  Receipt Date: 20250512
  Transmission Date: 20250717
  Serious: Yes (Death)
  Sender: FDA-CTU
  Company Number: None

PATIENT
  Age: 61 Year
  Sex: Male

DRUGS (11)
  1. ACTEMRA [Suspect]
     Active Substance: TOCILIZUMAB
     Indication: Rheumatoid arthritis
     Dates: start: 20240628, end: 20250505
  2. IANDROGEL GEL 1.62% [Concomitant]
  3. ARAVA TAB [Concomitant]
  4. BIOTIN TAB 10MG [Concomitant]
  5. CALCIUM [Concomitant]
     Active Substance: CALCIUM
  6. COQ10 CAP [Concomitant]
  7. ENBREL [Concomitant]
     Active Substance: ETANERCEPT
  8. FLOMAX CAP [Concomitant]
  9. KEPPRA TAB [Concomitant]
  10. KRILL OIL CAP [Concomitant]
  11. LEXAPRO TAB [Concomitant]

REACTIONS (1)
  - Death [None]

NARRATIVE: CASE EVENT DATE: 20250505
